FAERS Safety Report 6682029-6 (Version None)
Quarter: 2010Q2

REPORT INFORMATION
  Report Type: 
  Country: None (occurrence: None)
  Receive Date: 20100414
  Receipt Date: 20100414
  Transmission Date: 20101027
  Serious: Yes (Life-Threatening, Hospitalization)
  Sender: FDA-Public Use
  Company Number: None

PATIENT
  Age: 85 Year
  Sex: Female
  Weight: 70.4 kg

DRUGS (14)
  1. VANCOMYCIN [Suspect]
     Indication: CELLULITIS
     Dosage: 1 GRAM DAILY IV
     Route: 042
     Dates: start: 20100331, end: 20100410
  2. FOSAMAX [Concomitant]
  3. PREDNISONE [Concomitant]
  4. AMARYL [Concomitant]
  5. LASIX [Concomitant]
  6. XOPENEX [Concomitant]
  7. ATROVENT [Concomitant]
  8. MULTI-VITAMIN [Concomitant]
  9. CALCIUM PLUS D [Concomitant]
  10. FENTANYL [Concomitant]
  11. COLACE [Concomitant]
  12. LUMIGAN [Concomitant]
  13. LISINOPRIL [Concomitant]
  14. CIPRO [Concomitant]

REACTIONS (2)
  - CHEST PAIN [None]
  - THROMBOCYTOPENIA [None]
